FAERS Safety Report 8383978-3 (Version None)
Quarter: 2012Q2

REPORT INFORMATION
  Report Type: 
  Country: None (occurrence: None)
  Receive Date: 20120524
  Receipt Date: 20120510
  Transmission Date: 20120825
  Serious: Yes (Other)
  Sender: FDA-Public Use
  Company Number: BE-GLAXOSMITHKLINE-B0801368A

PATIENT
  Sex: Female

DRUGS (1)
  1. NICOTINE [Suspect]
     Indication: EX-TOBACCO USER
     Dosage: 1PAT PER DAY
     Route: 062
     Dates: start: 20120510, end: 20120510

REACTIONS (4)
  - SKIN BURNING SENSATION [None]
  - ARRHYTHMIA [None]
  - NAUSEA [None]
  - VOMITING [None]
